FAERS Safety Report 18305861 (Version 1)
Quarter: 2020Q3

REPORT INFORMATION
  Report Type: Spontaneous
  Country: US (occurrence: US)
  Receive Date: 20200923
  Receipt Date: 20200923
  Transmission Date: 20201103
  Serious: Yes (Hospitalization)
  Sender: FDA-Public Use
  Company Number: None

PATIENT
  Age: 60 Year
  Sex: Male
  Weight: 66.22 kg

DRUGS (1)
  1. IRINOTECAN (IRINOTECAN HCL 20MG/ML INJ, SOLN) [Suspect]
     Active Substance: IRINOTECAN
     Indication: ADENOCARCINOMA GASTRIC
     Route: 042
     Dates: start: 20200515, end: 20200515

REACTIONS (4)
  - Gastric haemorrhage [None]
  - Therapy cessation [None]
  - Haemoglobin decreased [None]
  - Gastritis [None]

NARRATIVE: CASE EVENT DATE: 20200516
